FAERS Safety Report 18661765 (Version 2)
Quarter: 2021Q1

REPORT INFORMATION
  Report Type: Spontaneous
  Country: CA (occurrence: CA)
  Receive Date: 20201224
  Receipt Date: 20210127
  Transmission Date: 20210419
  Serious: Yes (Other)
  Sender: FDA-Public Use
  Company Number: CA-TEVA-2020-CA-1860436

PATIENT
  Sex: Female

DRUGS (14)
  1. METHOTREXATE. [Suspect]
     Active Substance: METHOTREXATE
     Indication: GRANULOMATOSIS WITH POLYANGIITIS
     Dosage: MAINTENANCE THERAPY
     Route: 065
     Dates: start: 2008
  2. IMMUNOGLOBULIN [Concomitant]
     Route: 041
     Dates: end: 201804
  3. METHOTREXATE. [Suspect]
     Active Substance: METHOTREXATE
     Route: 048
     Dates: end: 201907
  4. RITUXIMAB. [Concomitant]
     Active Substance: RITUXIMAB
     Indication: GRANULOMATOSIS WITH POLYANGIITIS
     Dosage: FOUR TIMES; INDUCTION THERAPY
     Route: 050
     Dates: start: 2008
  5. RITUXIMAB. [Concomitant]
     Active Substance: RITUXIMAB
     Dosage: MAINTENANCE THERAPY; EVERY 4 MONTHS
     Route: 050
  6. PREDNISONE. [Suspect]
     Active Substance: PREDNISONE
     Indication: GRANULOMATOSIS WITH POLYANGIITIS
     Dosage: HIGH?DOSE INDUCTION TREATMENT
     Route: 065
     Dates: start: 2007
  7. PREDNISONE. [Suspect]
     Active Substance: PREDNISONE
     Dosage: CONTINUOUS LOW?DOSE MAINTENANCE THERAPY
     Route: 065
  8. MYCOPHENOLATE MOFETIL. [Suspect]
     Active Substance: MYCOPHENOLATE MOFETIL
     Indication: GRANULOMATOSIS WITH POLYANGIITIS
     Dosage: MAINTENANCE THERAPY
     Route: 065
  9. RITUXIMAB. [Concomitant]
     Active Substance: RITUXIMAB
     Dosage: MAINTENANCE THERAPY; EVERY 6 MONTHS
     Route: 050
  10. PREDNISONE. [Suspect]
     Active Substance: PREDNISONE
     Dosage: DOSE NOT LESS THEN 15 MG/DAY SINCE 2010
     Route: 065
     Dates: end: 201911
  11. LEFLUNOMIDE. [Concomitant]
     Active Substance: LEFLUNOMIDE
     Indication: GRANULOMATOSIS WITH POLYANGIITIS
     Dosage: 20 MILLIGRAM DAILY;
     Route: 065
     Dates: end: 201806
  12. AZATHIOPRINE. [Suspect]
     Active Substance: AZATHIOPRINE
     Indication: GRANULOMATOSIS WITH POLYANGIITIS
     Route: 065
  13. ECULIZUMAB [Suspect]
     Active Substance: ECULIZUMAB
     Indication: GRANULOMATOSIS WITH POLYANGIITIS
     Dosage: SINGLE DOSE
     Route: 065
     Dates: start: 2013
  14. IMMUNOGLOBULIN [Concomitant]
     Indication: GRANULOMATOSIS WITH POLYANGIITIS
     Route: 041

REACTIONS (4)
  - Drug ineffective [Unknown]
  - Pneumonia bacterial [Unknown]
  - Pneumocystis jirovecii pneumonia [Unknown]
  - Hypersensitivity [Unknown]
